FAERS Safety Report 26110153 (Version 2)
Quarter: 2025Q4

REPORT INFORMATION
  Report Type: Report from Study
  Country: KR (occurrence: KR)
  Receive Date: 20251201
  Receipt Date: 20251219
  Transmission Date: 20260117
  Serious: Yes (Death, Other)
  Sender: BRISTOL-MYERS SQUIBB COMPANY
  Company Number: KR-BRISTOL-MYERS SQUIBB COMPANY-2025-161739

PATIENT
  Age: 81 Year
  Sex: Male

DRUGS (3)
  1. YERVOY [Suspect]
     Active Substance: IPILIMUMAB
     Indication: Hepatobiliary cancer
     Dosage: DOSE: 50/10 MG/ML
     Route: 042
     Dates: start: 20251010, end: 20251010
  2. OPDIVO [Suspect]
     Active Substance: NIVOLUMAB
     Indication: Hepatobiliary cancer
     Dosage: DOSE: 60/6 MG/ML
     Route: 042
     Dates: start: 20251010, end: 20251010
  3. OPDIVO [Suspect]
     Active Substance: NIVOLUMAB
     Dosage: DOSE: 100/10 MG/ML
     Route: 042
     Dates: start: 20251010, end: 20251010

REACTIONS (2)
  - Death [Fatal]
  - Off label use [Unknown]
